FAERS Safety Report 15128262 (Version 1)
Quarter: 2018Q3

REPORT INFORMATION
  Report Type: Spontaneous
  Country: US (occurrence: US)
  Receive Date: 20180711
  Receipt Date: 20180711
  Transmission Date: 20181010
  Serious: No
  Sender: FDA-Public Use
  Company Number: US-AMGEN-USASP2018093510

PATIENT
  Sex: Male

DRUGS (1)
  1. ENBREL [Suspect]
     Active Substance: ETANERCEPT
     Indication: PRODUCT USED FOR UNKNOWN INDICATION
     Dosage: UNK
     Route: 065

REACTIONS (7)
  - Balance disorder [Unknown]
  - Condition aggravated [Unknown]
  - Nasal congestion [Not Recovered/Not Resolved]
  - Amnesia [Unknown]
  - Sinusitis [Unknown]
  - Dizziness [Not Recovered/Not Resolved]
  - Musculoskeletal pain [Unknown]
